FAERS Safety Report 24269470 (Version 1)
Quarter: 2024Q3

REPORT INFORMATION
  Report Type: Spontaneous
  Country: US (occurrence: US)
  Receive Date: 20240830
  Receipt Date: 20240830
  Transmission Date: 20241017
  Serious: No
  Sender: APOTEX
  Company Number: US-APOTEX-2024AP001798

PATIENT
  Age: 16 Year
  Sex: Male

DRUGS (3)
  1. ARIPIPRAZOLE [Suspect]
     Active Substance: ARIPIPRAZOLE
     Indication: Product used for unknown indication
     Dosage: UNK
     Route: 065
  2. ARIPIPRAZOLE [Suspect]
     Active Substance: ARIPIPRAZOLE
     Dosage: 10 MILLIGRAM
     Route: 065
  3. ESCITALOPRAM [Suspect]
     Active Substance: ESCITALOPRAM OXALATE
     Indication: Product used for unknown indication
     Dosage: 10 MILLIGRAM, QD
     Route: 065

REACTIONS (2)
  - Drug tolerance [Unknown]
  - Treatment noncompliance [Unknown]
